FAERS Safety Report 25396894 (Version 4)
Quarter: 2025Q4

REPORT INFORMATION
  Report Type: Report from Study
  Country: US (occurrence: None)
  Receive Date: 20250604
  Receipt Date: 20251030
  Transmission Date: 20260118
  Serious: Yes (Other)
  Sender: UCB
  Company Number: US-UCBSA-2025000169

PATIENT
  Age: 16 Year
  Weight: 47.3 kg

DRUGS (6)
  1. FENFLURAMINE [Suspect]
     Active Substance: FENFLURAMINE
     Indication: Severe myoclonic epilepsy of infancy
     Dosage: 4 MILLILITER, 3X/DAY (TID)
  2. FENFLURAMINE [Suspect]
     Active Substance: FENFLURAMINE
     Dosage: 4 MILLILITER, 3X/DAY (TID)
  3. FENFLURAMINE [Suspect]
     Active Substance: FENFLURAMINE
     Dosage: 4 MILLILITER, 3X/DAY (TID)
  4. TOPIRAMATE [Concomitant]
     Active Substance: TOPIRAMATE
     Indication: Epilepsy
     Dosage: 150 MILLIGRAM, 3X/DAY (TID)
  5. EPIDIOLEX [Concomitant]
     Active Substance: CANNABIDIOL
     Indication: Epilepsy
     Dosage: 3.5 MILLILITER, 3X/DAY (TID)
  6. DIACOMIT [Concomitant]
     Active Substance: STIRIPENTOL
     Indication: Epilepsy
     Dosage: 250 MILLIGRAM, 3X/DAY (TID)

REACTIONS (4)
  - Seizure cluster [Not Recovered/Not Resolved]
  - Pulmonary valve incompetence [Unknown]
  - Gastroenteritis viral [Recovered/Resolved]
  - Inappropriate schedule of product administration [Unknown]
